FAERS Safety Report 5659097-3 (Version None)
Quarter: 2008Q1

REPORT INFORMATION
  Report Type: 
  Country: None (occurrence: None)
  Receive Date: 20080219
  Receipt Date: 20071109
  Transmission Date: 20080703
  Serious: No
  Sender: FDA-Public Use
  Company Number: WAES 0710USA00189

PATIENT
  Age: 61 Year
  Sex: Female
  Weight: 52.1637 kg

DRUGS (5)
  1. JANUVIA [Suspect]
     Indication: TYPE 2 DIABETES MELLITUS
     Dosage: 100 MG/DAILY/PO
     Route: 048
     Dates: start: 20070401
  2. FOSAMAX [Concomitant]
  3. ZOCOR [Concomitant]
  4. LEVOTHYROXINE SODIUM [Concomitant]
  5. METFORMIN HYDROCHLORIDE [Concomitant]

REACTIONS (7)
  - DIARRHOEA [None]
  - HYPERCALCAEMIA [None]
  - HYPERGLYCAEMIA [None]
  - HYPERKERATOSIS [None]
  - PHARMACEUTICAL PRODUCT COMPLAINT [None]
  - SCIATICA [None]
  - UPPER RESPIRATORY TRACT INFECTION [None]
